FAERS Safety Report 9749457 (Version 2)
Quarter: 2014Q1

REPORT INFORMATION
  Report Type: Spontaneous
  Country: US (occurrence: US)
  Receive Date: 20131212
  Receipt Date: 20140127
  Transmission Date: 20141002
  Serious: Yes (Other)
  Sender: FDA-Public Use
  Company Number: US-PFIZER INC-2013351246

PATIENT
  Age: 77 Year
  Sex: Female
  Weight: 102 kg

DRUGS (2)
  1. AZITHROMYCIN [Suspect]
     Indication: BRONCHITIS
     Dosage: 500MG (TWO 250 MG TABLETS), DAILY
     Dates: start: 20131129
  2. AZITHROMYCIN [Suspect]
     Dosage: 250 MG, DAILY
     Dates: start: 20131130, end: 20131201

REACTIONS (14)
  - Haematochezia [Not Recovered/Not Resolved]
  - Diarrhoea [Not Recovered/Not Resolved]
  - Nausea [Not Recovered/Not Resolved]
  - Muscular weakness [Not Recovered/Not Resolved]
  - Vulvovaginal pruritus [Not Recovered/Not Resolved]
  - Dysgeusia [Not Recovered/Not Resolved]
  - Tinnitus [Not Recovered/Not Resolved]
  - Headache [Not Recovered/Not Resolved]
  - Nervousness [Not Recovered/Not Resolved]
  - Abdominal pain upper [Not Recovered/Not Resolved]
  - Vulvovaginal discomfort [Not Recovered/Not Resolved]
  - Flatulence [Not Recovered/Not Resolved]
  - Anorectal disorder [Not Recovered/Not Resolved]
  - Anorectal discomfort [Not Recovered/Not Resolved]
